FAERS Safety Report 20460346 (Version 1)
Quarter: 2022Q1

REPORT INFORMATION
  Report Type: Spontaneous
  Country: GB (occurrence: GB)
  Receive Date: 20220211
  Receipt Date: 20220211
  Transmission Date: 20220423
  Serious: No
  Sender: FDA-Public Use
  Company Number: None

PATIENT
  Age: 75 Year
  Sex: Female
  Weight: 78 kg

DRUGS (12)
  1. CEPHALEXIN [Suspect]
     Active Substance: CEPHALEXIN
     Indication: Ill-defined disorder
     Dosage: UNK UNK, BID
     Route: 065
     Dates: start: 20210409
  2. CEPHALEXIN [Suspect]
     Active Substance: CEPHALEXIN
     Dosage: UNK
     Route: 065
     Dates: start: 20210411
  3. APIXABAN [Concomitant]
     Active Substance: APIXABAN
     Indication: Ill-defined disorder
     Dosage: UNK UNK, BID
     Route: 065
     Dates: start: 20170313
  4. ATORVASTATIN [Concomitant]
     Active Substance: ATORVASTATIN
     Indication: Ill-defined disorder
     Dosage: UNK UNK, QD
     Route: 065
     Dates: start: 20190614
  5. BETAMETHASONE VALERATE [Concomitant]
     Active Substance: BETAMETHASONE VALERATE
     Indication: Ill-defined disorder
     Dosage: UNK UNK, BID
     Route: 065
     Dates: start: 20210409
  6. BISOPROLOL [Concomitant]
     Active Substance: BISOPROLOL
     Indication: Ill-defined disorder
     Dosage: UNK UNK, QD
     Route: 065
     Dates: start: 20170516
  7. COCODAMOL [Concomitant]
     Active Substance: ACETAMINOPHEN\CODEINE PHOSPHATE
     Indication: Ill-defined disorder
     Dosage: UNK UNK, QID
     Route: 065
     Dates: start: 20170814
  8. FLUOROURACIL [Concomitant]
     Active Substance: FLUOROURACIL
     Indication: Ill-defined disorder
     Dosage: UNK UNK, QD
     Route: 065
     Dates: start: 20210319
  9. FLECAINIDE ACETATE [Concomitant]
     Active Substance: FLECAINIDE ACETATE
     Indication: Ill-defined disorder
     Dosage: UNK UNK, BID
     Route: 065
     Dates: start: 20190410
  10. FLUCLOXACILLIN [Concomitant]
     Active Substance: FLUCLOXACILLIN
     Indication: Ill-defined disorder
     Dosage: UNK UNK, QID
     Route: 065
     Dates: start: 20210406
  11. FUROSEMIDE [Concomitant]
     Active Substance: FUROSEMIDE
     Indication: Ill-defined disorder
     Dosage: UNK UNK, QD
     Route: 065
     Dates: start: 20210409
  12. ALBUTEROL [Concomitant]
     Active Substance: ALBUTEROL
     Indication: Ill-defined disorder
     Dosage: UNK UNK, QID
     Route: 065
     Dates: start: 20170605

REACTIONS (1)
  - Urticaria [Not Recovered/Not Resolved]

NARRATIVE: CASE EVENT DATE: 20210411
